FAERS Safety Report 10272375 (Version 1)
Quarter: 2014Q2

REPORT INFORMATION
  Report Type: Spontaneous
  Country: US (occurrence: None)
  Receive Date: 20140630
  Receipt Date: 20140630
  Transmission Date: 20141212
  Serious: No
  Sender: FDA-Public Use
  Company Number: None

PATIENT
  Age: 60 Year
  Sex: Male
  Weight: 61.24 kg

DRUGS (1)
  1. ATRIPLA 600/200/300 [Suspect]
     Dosage: THERAPY DATE ?10-1-2014 TO PRESENT

REACTIONS (2)
  - Dysgeusia [None]
  - Weight decreased [None]
